FAERS Safety Report 19203095 (Version 4)
Quarter: 2021Q3

REPORT INFORMATION
  Report Type: Spontaneous
  Country: PL (occurrence: PL)
  Receive Date: 20210503
  Receipt Date: 20210823
  Transmission Date: 20211014
  Serious: Yes (Hospitalization, Other)
  Sender: FDA-Public Use
  Company Number: PL-JNJFOC-20210452651

PATIENT
  Age: 42 Year
  Sex: Female
  Weight: 75 kg

DRUGS (5)
  1. HASCOVIR [Concomitant]
     Indication: INFECTION PROPHYLAXIS
  2. DARZALEX [Suspect]
     Active Substance: DARATUMUMAB
     Indication: PLASMA CELL MYELOMA
     Route: 042
     Dates: start: 201605, end: 20201229
  3. DEXAMETHASONE. [Suspect]
     Active Substance: DEXAMETHASONE
     Indication: PLASMA CELL MYELOMA
     Route: 065
     Dates: start: 20191105, end: 20201229
  4. BISEPTOL [Concomitant]
     Active Substance: SULFAMETHOXAZOLE\TRIMETHOPRIM
     Indication: INFECTION PROPHYLAXIS
  5. VELCADE [Suspect]
     Active Substance: BORTEZOMIB
     Indication: PLASMA CELL MYELOMA
     Route: 065
     Dates: start: 20191105, end: 20201229

REACTIONS (3)
  - COVID-19 [Unknown]
  - Upper respiratory tract infection [Unknown]
  - Plasma cell myeloma [Unknown]
